FAERS Safety Report 5798917-9 (Version None)
Quarter: 2008Q3

REPORT INFORMATION
  Report Type: 
  Country: None (occurrence: None)
  Receive Date: 20080701
  Receipt Date: 20080619
  Transmission Date: 20090109
  Serious: Yes (Death, Hospitalization)
  Sender: FDA-Public Use
  Company Number: 235494J08USA

PATIENT
  Age: 46 Year
  Sex: Male

DRUGS (1)
  1. REBIF [Suspect]
     Indication: MULTIPLE SCLEROSIS
     Dates: start: 20080520, end: 20080525

REACTIONS (4)
  - CARDIAC ARREST [None]
  - DEMYELINATION [None]
  - MENTAL STATUS CHANGES [None]
  - PNEUMONIA [None]
